FAERS Safety Report 7745666-3 (Version None)
Quarter: 2011Q3

REPORT INFORMATION
  Report Type: 
  Country: None (occurrence: None)
  Receive Date: 20110908
  Receipt Date: 20110823
  Transmission Date: 20111222
  Serious: Yes (Other)
  Sender: FDA-Public Use
  Company Number: THQ2011A04023

PATIENT
  Age: 71 Year
  Sex: Female

DRUGS (2)
  1. ACTOS [Suspect]
     Indication: DIABETES MELLITUS
     Dosage: 30 MG (30 MG, 1 IN 1 D), ORAL
     Route: 048
     Dates: start: 20060501, end: 20091001
  2. METFORMIN HCL [Concomitant]

REACTIONS (2)
  - BLADDER CANCER [None]
  - OEDEMA [None]
